FAERS Safety Report 23554417 (Version 3)
Quarter: 2024Q3

REPORT INFORMATION
  Report Type: Spontaneous
  Country: US (occurrence: US)
  Receive Date: 20240222
  Receipt Date: 20240917
  Transmission Date: 20241016
  Serious: No
  Sender: PFIZER
  Company Number: US-PFIZER INC-202400029161

PATIENT
  Age: 74 Year
  Sex: Female
  Weight: 53.515 kg

DRUGS (1)
  1. XELJANZ [Suspect]
     Active Substance: TOFACITINIB CITRATE
     Indication: Rheumatoid arthritis
     Dosage: 5 MG, 2X/DAY
     Route: 048
     Dates: start: 20240315

REACTIONS (5)
  - Product prescribing error [Unknown]
  - Coronavirus infection [Unknown]
  - Therapeutic response unexpected [Unknown]
  - Herpes zoster [Unknown]
  - Fungal foot infection [Unknown]
